FAERS Safety Report 17988700 (Version 1)
Quarter: 2020Q3

REPORT INFORMATION
  Report Type: Spontaneous
  Country: US (occurrence: US)
  Receive Date: 20200707
  Receipt Date: 20200707
  Transmission Date: 20201103
  Serious: No
  Sender: FDA-Public Use
  Company Number: US-PFIZER INC-2020253852

PATIENT
  Age: 62 Year
  Sex: Male
  Weight: 83.91 kg

DRUGS (8)
  1. FLUDROCORTISONE [Concomitant]
     Active Substance: FLUDROCORTISONE
     Indication: HYPOPITUITARISM
     Dosage: 0.1 MG (.1MG THREE DAYS WEEKLY ALTERNATING WITH 0.05MG FOUR DAYS A WEEK )
     Dates: start: 2005
  2. FLUDROCORTISONE [Concomitant]
     Active Substance: FLUDROCORTISONE
     Dosage: 0.05 MG (.1MG THREE DAYS WEEKLY ALTERNATING WITH 0.05MG FOUR DAYS A WEEK)
     Dates: start: 2005
  3. LEVOTHYROXINE. [Concomitant]
     Active Substance: LEVOTHYROXINE
     Indication: HYPOPITUITARISM
     Dosage: 137 MG, DAILY
     Dates: start: 2005
  4. HYDROCORTISONE. [Concomitant]
     Active Substance: HYDROCORTISONE
     Indication: HYPOPITUITARISM
     Dosage: UNK UNK, 2X/DAY (10MG IN THE MORN, 5MG IN THE AFTERNOON)
     Dates: start: 2005
  5. TESTOSTERONE. [Concomitant]
     Active Substance: TESTOSTERONE
     Indication: HYPOPITUITARISM
     Dosage: UNK, DAILY (1 GEL PACK .5MG 15/5GRAMS DAILY TO STOMACH)
     Dates: start: 2005
  6. DESMOPRESSIN [Concomitant]
     Active Substance: DESMOPRESSIN
     Indication: HYPOPITUITARISM
     Dosage: 0.1 MG (.1MG, 4 DAILY)
     Dates: start: 2005
  7. GENOTROPIN MQ [Suspect]
     Active Substance: SOMATROPIN
     Indication: HYPOPITUITARISM
     Dosage: 0.6 MG, DAILY (0.6MG INJECTION DAILY)
  8. LIOTHYRONINE [Concomitant]
     Active Substance: LIOTHYRONINE
     Indication: HYPOPITUITARISM
     Dosage: 5 MG, 2X/DAY
     Dates: start: 2005

REACTIONS (2)
  - Intentional product misuse [Unknown]
  - Fatigue [Unknown]

NARRATIVE: CASE EVENT DATE: 202006
